FAERS Safety Report 12561431 (Version 3)
Quarter: 2016Q3

REPORT INFORMATION
  Report Type: Spontaneous
  Country: US (occurrence: US)
  Receive Date: 20160715
  Receipt Date: 20160808
  Transmission Date: 20161109
  Serious: No
  Sender: FDA-Public Use
  Company Number: US-BEH-2016062807

PATIENT
  Sex: Female
  Weight: 67 kg

DRUGS (13)
  1. HIZENTRA [Suspect]
     Active Substance: HUMAN IMMUNOGLOBULIN G
     Indication: TRANSIENT HYPOGAMMAGLOBULINAEMIA OF INFANCY
     Route: 058
  2. ZOCOR [Concomitant]
     Active Substance: SIMVASTATIN
  3. ADVIL [Concomitant]
     Active Substance: IBUPROFEN
  4. FLUCONAZOLE. [Concomitant]
     Active Substance: FLUCONAZOLE
  5. DIPHENHYDRAMINE. [Concomitant]
     Active Substance: DIPHENHYDRAMINE
  6. FIORICET WITH CODEINE [Concomitant]
     Active Substance: ACETAMINOPHEN\BUTALBITAL\CAFFEINE\CODEINE PHOSPHATE
  7. VIGAMOX [Concomitant]
     Active Substance: MOXIFLOXACIN HYDROCHLORIDE
  8. TOBRADEX EYE DROPS [Concomitant]
  9. TOPROL XL [Concomitant]
     Active Substance: METOPROLOL SUCCINATE
  10. EPIPEN [Concomitant]
     Active Substance: EPINEPHRINE
  11. HYDROCODON-ACETAMINOPH [Concomitant]
  12. HIZENTRA [Suspect]
     Active Substance: HUMAN IMMUNOGLOBULIN G
     Indication: HUMORAL IMMUNE DEFECT
     Route: 058
  13. PROZAC [Concomitant]
     Active Substance: FLUOXETINE HYDROCHLORIDE

REACTIONS (4)
  - Headache [Unknown]
  - Migraine [Unknown]
  - Fatigue [Unknown]
  - Adverse drug reaction [Unknown]
